FAERS Safety Report 6645874-9 (Version None)
Quarter: 2010Q1

REPORT INFORMATION
  Report Type: 
  Country: None (occurrence: None)
  Receive Date: 20100323
  Receipt Date: 20100311
  Transmission Date: 20100710
  Serious: Yes (Other)
  Sender: FDA-Public Use
  Company Number: PHHY2009JP38286

PATIENT
  Sex: Male
  Weight: 63 kg

DRUGS (4)
  1. TASIGNA [Suspect]
     Indication: CHRONIC MYELOID LEUKAEMIA
     Dosage: 800 MG/DAY
     Route: 048
     Dates: start: 20090710, end: 20091112
  2. HARNAL [Concomitant]
     Indication: BENIGN PROSTATIC HYPERPLASIA
     Dosage: 0.4MG
     Dates: start: 20000101
  3. ISODINE [Concomitant]
     Indication: PROPHYLAXIS
     Dosage: UNK
     Dates: start: 20071216
  4. MYCOSYST [Concomitant]
     Indication: TINEA INFECTION
     Dosage: 100 MG, UNK
     Route: 048
     Dates: start: 20090721, end: 20090818

REACTIONS (4)
  - BLAST CRISIS IN MYELOGENOUS LEUKAEMIA [None]
  - GAMMA-GLUTAMYLTRANSFERASE INCREASED [None]
  - RASH [None]
  - TINEA PEDIS [None]
